FAERS Safety Report 7320933-6 (Version None)
Quarter: 2011Q1

REPORT INFORMATION
  Report Type: 
  Country: None (occurrence: None)
  Receive Date: 20110126
  Receipt Date: 20101215
  Transmission Date: 20110831
  Serious: Yes (Death)
  Sender: FDA-Public Use
  Company Number: A-NJ2010-42958

PATIENT
  Sex: Female

DRUGS (3)
  1. EPOPROSTENOL SODIUM [Suspect]
     Indication: PULMONARY ARTERIAL HYPERTENSION
     Dosage: 6 NG/KG, PER MIN, IV DRIP
     Route: 041
     Dates: start: 20100629, end: 20101201
  2. TRACLEER [Concomitant]
  3. AMBRISENTAN (AMBRISENTAN) [Concomitant]

REACTIONS (1)
  - DEATH [None]
